FAERS Safety Report 8033095-7 (Version None)
Quarter: 2011Q4

REPORT INFORMATION
  Report Type: 
  Country: None (occurrence: None)
  Receive Date: 20111228
  Receipt Date: 20111221
  Transmission Date: 20120403
  Serious: Yes (Hospitalization)
  Sender: FDA-Public Use
  Company Number: 2009SP042237

PATIENT
  Age: 42 Year
  Sex: Female
  Weight: 69.4 kg

DRUGS (9)
  1. MULTI-VITAMINS [Concomitant]
  2. LORAZEPAM [Concomitant]
  3. NUVARING [Suspect]
     Indication: DYSFUNCTIONAL UTERINE BLEEDING
     Dosage: QM;VAG
     Route: 067
     Dates: start: 20070912, end: 20080101
  4. NUVARING [Suspect]
     Indication: MENOMETRORRHAGIA
     Dosage: QM;VAG
     Route: 067
     Dates: start: 20070912, end: 20080101
  5. NUVARING [Suspect]
     Indication: DYSMENORRHOEA
     Dosage: QM;VAG
     Route: 067
     Dates: start: 20070912, end: 20080101
  6. VITAMIN C [Concomitant]
  7. PROTONIX [Concomitant]
  8. CLARITIN [Concomitant]
  9. SLOW FE [Concomitant]

REACTIONS (12)
  - LYMPHADENOPATHY [None]
  - VAGINITIS BACTERIAL [None]
  - BACK PAIN [None]
  - BRONCHIECTASIS [None]
  - DEEP VEIN THROMBOSIS [None]
  - SARCOIDOSIS [None]
  - OCCULT BLOOD POSITIVE [None]
  - NORMOCHROMIC NORMOCYTIC ANAEMIA [None]
  - HAEMATURIA [None]
  - CONSTIPATION [None]
  - UTERINE LEIOMYOMA [None]
  - PULMONARY SARCOIDOSIS [None]
